FAERS Safety Report 10396808 (Version 1)
Quarter: 2014Q1

REPORT INFORMATION
  Report Type: Spontaneous
  Country: US (occurrence: None)
  Receive Date: 20130815
  Receipt Date: 20130815
  Transmission Date: 20141002
  Serious: Yes (Hospitalization)
  Sender: FDA-Public Use
  Company Number: ADR-2012-02282

PATIENT
  Sex: 0

DRUGS (1)
  1. LIORESAL INTRATHECAL [Suspect]
     Dosage: 183.6 MCG/DAY

REACTIONS (4)
  - Hypotonia [None]
  - Muscular weakness [None]
  - Muscle spasticity [None]
  - Unevaluable event [None]
